FAERS Safety Report 10955931 (Version 1)
Quarter: 2015Q1

REPORT INFORMATION
  Report Type: Spontaneous
  Country: US (occurrence: None)
  Receive Date: 20150309
  Receipt Date: 20150309
  Transmission Date: 20150721
  Serious: Yes (Other)
  Sender: FDA-Public Use
  Company Number: A14-0064B

PATIENT
  Age: 29 Year
  Sex: Female

DRUGS (2)
  1. B: WEED MX, TREE MX, #5GRASS [Suspect]
     Active Substance: ALLERGENIC EXTRACTS
     Indication: IMMUNE SYSTEM DISORDER
     Dates: start: 20141006
  2. A: MITE MX, CR, CAT, DOG [Suspect]
     Active Substance: ALLERGENIC EXTRACTS
     Indication: IMMUNE SYSTEM DISORDER
     Dates: start: 20141006

REACTIONS (4)
  - Throat irritation [None]
  - Nasal congestion [None]
  - Urticaria [None]
  - Pruritus [None]

NARRATIVE: CASE EVENT DATE: 20141006
